FAERS Safety Report 8906520 (Version 1)
Quarter: 2012Q4

REPORT INFORMATION
  Report Type: Spontaneous
  Country: IT (occurrence: None)
  Receive Date: 20121107
  Receipt Date: 20121107
  Transmission Date: 20130627
  Serious: Yes (Other)
  Sender: FDA-Public Use
  Company Number: IT-SEPTODONT-201200823

PATIENT
  Age: 41 Year
  Sex: Female

DRUGS (1)
  1. ARTICAINE HYDROCHLORIDE AND EPINEPHRINE BITARTRATE [Suspect]
     Indication: LOCAL ANAESTHESIA
     Route: 004

REACTIONS (3)
  - Pain [None]
  - Mouth ulceration [None]
  - Injection site necrosis [None]
